FAERS Safety Report 9386959 (Version 1)
Quarter: 2013Q3

REPORT INFORMATION
  Report Type: Spontaneous
  Country: US (occurrence: US)
  Receive Date: 20130708
  Receipt Date: 20130708
  Transmission Date: 20140515
  Serious: Yes (Other)
  Sender: FDA-Public Use
  Company Number: US-TEVA-416646USA

PATIENT
  Age: 73 Year
  Sex: Female
  Weight: 65.83 kg

DRUGS (3)
  1. AZILECT [Suspect]
     Indication: PARKINSON^S DISEASE
     Dates: start: 20110701
  2. ASPIRIN [Concomitant]
     Indication: PROPHYLAXIS
     Dosage: 81 MILLIGRAM DAILY;
     Route: 048
  3. BYSTOLIC [Concomitant]
     Indication: TACHYCARDIA
     Dosage: 20 MILLIGRAM DAILY;
     Route: 048

REACTIONS (3)
  - Hip arthroplasty [Recovered/Resolved]
  - Constipation [Not Recovered/Not Resolved]
  - Arthralgia [Recovered/Resolved]
